FAERS Safety Report 9380342 (Version 4)
Quarter: 2014Q4

REPORT INFORMATION
  Report Type: Spontaneous
  Country: US (occurrence: US)
  Receive Date: 20130702
  Receipt Date: 20141201
  Transmission Date: 20150529
  Serious: Yes (Hospitalization, Other)
  Sender: FDA-Public Use
  Company Number: US-GLAXOSMITHKLINE-A1029273A

PATIENT
  Sex: Male

DRUGS (2)
  1. AVANDIA [Suspect]
     Active Substance: ROSIGLITAZONE MALEATE
     Indication: DIABETES MELLITUS
     Dosage: 08 MG, UNK
     Route: 048
     Dates: start: 20070327, end: 20090623
  2. AVANDAMET [Suspect]
     Active Substance: METFORMIN HYDROCHLORIDE\ROSIGLITAZONE MALEATE
     Indication: DIABETES MELLITUS
     Dosage: 4/500 MG
     Route: 048
     Dates: start: 20090207, end: 20090514

REACTIONS (8)
  - Retinal oedema [Unknown]
  - Cardiac pacemaker insertion [Unknown]
  - Atrioventricular block complete [Unknown]
  - Cardiac failure congestive [Unknown]
  - Cerebral haemorrhage [Unknown]
  - Atrial fibrillation [Unknown]
  - Cerebrovascular accident [Unknown]
  - Cardiac disorder [Unknown]

NARRATIVE: CASE EVENT DATE: 2000
